FAERS Safety Report 5612180-0 (Version None)
Quarter: 2008Q1

REPORT INFORMATION
  Report Type: 
  Country: None (occurrence: None)
  Receive Date: 20080204
  Receipt Date: 20080121
  Transmission Date: 20080703
  Serious: Yes (Other)
  Sender: FDA-Public Use
  Company Number: GB-BAUSCH-2008BL000258

PATIENT
  Age: 2 Month
  Sex: Female

DRUGS (2)
  1. MINIMS PHENYLEPHRINE HYDROCHLORIDE 2.5% [Suspect]
     Indication: DRUG USE FOR UNKNOWN INDICATION
     Route: 047
  2. MINIMS TROPICAMIDE 0.5% [Suspect]
     Indication: DRUG USE FOR UNKNOWN INDICATION
     Route: 047

REACTIONS (1)
  - APNOEA [None]
